FAERS Safety Report 8693454 (Version 4)
Quarter: 2012Q4

REPORT INFORMATION
  Report Type: 
  Country: JP (occurrence: JP)
  Receive Date: 20120730
  Receipt Date: 20121108
  Transmission Date: 20130627
  Serious: Yes (Other)
  Sender: FDA-Public Use
  Company Number: JP-JNJFOC-20120714015

PATIENT
  Age: 84 Year
  Sex: Female
  Weight: 40 kg

DRUGS (13)
  1. REMINYL [Suspect]
     Indication: DEMENTIA ALZHEIMER^S TYPE
     Route: 048
     Dates: start: 20120609, end: 20120628
  2. DONEPEZIL HYDROCHLORIDE [Concomitant]
     Indication: DEMENTIA ALZHEIMER^S TYPE
     Route: 065
     Dates: start: 20120608, end: 20120609
  3. DONEPEZIL HYDROCHLORIDE [Concomitant]
     Indication: DEMENTIA ALZHEIMER^S TYPE
     Route: 065
     Dates: start: 20120628, end: 20120720
  4. ARTIST [Concomitant]
     Route: 048
  5. ITOROL [Concomitant]
     Route: 048
  6. SIGMART [Concomitant]
     Route: 048
  7. LUVOX [Concomitant]
     Route: 048
  8. WARFARIN [Concomitant]
     Route: 048
  9. DIOVAN [Concomitant]
     Route: 048
  10. BAYASPIRIN [Concomitant]
     Route: 048
  11. OMEPRAL [Concomitant]
     Route: 048
  12. CRESTOR [Concomitant]
     Route: 048
  13. AMLODIN OD [Concomitant]
     Route: 048

REACTIONS (4)
  - Electrolyte imbalance [Recovered/Resolved]
  - Dementia Alzheimer^s type [Recovered/Resolved]
  - Oedema peripheral [Recovered/Resolved]
  - Decreased appetite [Recovering/Resolving]
